FAERS Safety Report 10204779 (Version 2)
Quarter: 2014Q2

REPORT INFORMATION
  Report Type: Spontaneous
  Country: BR (occurrence: BR)
  Receive Date: 20140529
  Receipt Date: 20140607
  Transmission Date: 20141212
  Serious: Yes (Hospitalization)
  Sender: FDA-Public Use
  Company Number: BR-ELI_LILLY_AND_COMPANY-BR201405007859

PATIENT
  Sex: Female

DRUGS (9)
  1. FORTEO [Suspect]
     Indication: OSTEOPOROSIS
     Dosage: 20 UG, QD
     Route: 058
     Dates: start: 20140426
  2. LOSARTAN + HIDROCLOROTIAZIDA [Concomitant]
     Indication: BLOOD PRESSURE
     Dosage: UNK UNK, QD
     Route: 065
  3. PANTOPRAZOL [Concomitant]
     Dosage: 40 MG, QD
     Route: 065
  4. ROSUVASTATIN CALCIUM [Concomitant]
     Dosage: 10 MG, QD
     Route: 065
  5. PURAN T4 [Concomitant]
     Dosage: 75 MG, QD
     Route: 065
  6. ASPIRIN [Concomitant]
     Dosage: 100 MG, QD
     Route: 065
  7. CONCOR [Concomitant]
     Dosage: 2.5 MG, QD
     Route: 065
  8. ALDACTONE                          /00006201/ [Concomitant]
     Dosage: 25 MG, QD
     Route: 065
  9. LIPANON [Concomitant]
     Dosage: 250 MG, UNKNOWN
     Route: 065

REACTIONS (2)
  - Urinary tract infection [Recovered/Resolved]
  - Skin hyperpigmentation [Not Recovered/Not Resolved]
